FAERS Safety Report 11531960 (Version 4)
Quarter: 2015Q4

REPORT INFORMATION
  Report Type: Spontaneous
  Country: JP (occurrence: JP)
  Receive Date: 20150921
  Receipt Date: 20151123
  Transmission Date: 20160304
  Serious: Yes (Death)
  Sender: FDA-Public Use
  Company Number: JP-PFIZER INC-2015311024

PATIENT
  Age: 54 Year
  Sex: Female
  Weight: 46.7 kg

DRUGS (11)
  1. AMBROXOL HYDROCHLORIDE [Concomitant]
     Active Substance: AMBROXOL HYDROCHLORIDE
     Indication: PRODUCTIVE COUGH
     Dosage: 1 DF, 3X/DAY
     Route: 048
     Dates: start: 20121214
  2. ONEALFA [Concomitant]
     Active Substance: ALFACALCIDOL
     Indication: OSTEOPOROSIS
     Dosage: 1 ?G, 1X/DAY
     Route: 048
     Dates: start: 20120125
  3. ALEVIATIN [Concomitant]
     Active Substance: PHENYTOIN SODIUM
     Indication: SEIZURE
     Dosage: 100 MG, 3X/DAY
     Route: 048
     Dates: start: 20150601
  4. BERAPROST NA [Concomitant]
     Active Substance: BERAPROST SODIUM
     Indication: PULMONARY HYPERTENSION
     Dosage: 60 ?G, 3X/DAY
     Route: 048
     Dates: start: 20120125
  5. LANSOPRAZOLE. [Concomitant]
     Active Substance: LANSOPRAZOLE
     Indication: GASTROOESOPHAGEAL REFLUX DISEASE
     Dosage: 15 MG, 1X/DAY
     Route: 048
     Dates: start: 20120125
  6. REVATIO [Suspect]
     Active Substance: SILDENAFIL CITRATE
     Dosage: 20 MG, 3X/DAY
     Route: 048
     Dates: start: 20120125
  7. VOLIBRIS [Concomitant]
     Active Substance: AMBRISENTAN
     Indication: PULMONARY HYPERTENSION
     Dosage: 5 MG, 1X/DAY
     Route: 048
     Dates: start: 20120125
  8. BIOFERMIN R [Concomitant]
     Active Substance: BACILLUS SUBTILIS\LACTOBACILLUS ACIDOPHILUS\STREPTOCOCCUS FAECAIS
     Indication: DYSBACTERIOSIS
     Dosage: 1 DF, 3X/DAY
     Route: 048
  9. RINDERON V [Concomitant]
     Active Substance: BETAMETHASONE VALERATE
     Indication: MIXED CONNECTIVE TISSUE DISEASE
     Dosage: 1.5 MG, 1X/DAY
     Route: 048
     Dates: start: 20120125
  10. CAMOSTAT MESILATE [Concomitant]
     Active Substance: CAMOSTAT MESYLATE
     Indication: PANCREATITIS
     Dosage: 100 MG, 3X/DAY
     Route: 048
     Dates: start: 20130329
  11. EXCEGRAN [Concomitant]
     Active Substance: ZONISAMIDE
     Indication: SEIZURE
     Dosage: 100 MG, 2X/DAY
     Route: 048
     Dates: start: 20130726

REACTIONS (7)
  - Sepsis [Fatal]
  - Ileus [Fatal]
  - Multi-organ failure [Fatal]
  - Pulmonary hypertension [Fatal]
  - Disease progression [Fatal]
  - Hypoxic-ischaemic encephalopathy [Fatal]
  - Mixed connective tissue disease [Fatal]

NARRATIVE: CASE EVENT DATE: 20150516
